FAERS Safety Report 4513630-3 (Version None)
Quarter: 2004Q4

REPORT INFORMATION
  Report Type: 
  Country: None (occurrence: None)
  Receive Date: 20041130
  Receipt Date: 20040809
  Transmission Date: 20050328
  Serious: Yes (Other)
  Sender: FDA-Public Use
  Company Number: US-GLAXOSMITHKLINE-A0522395A

PATIENT
  Age: 43 Year
  Sex: Female
  Weight: 59.1 kg

DRUGS (1)
  1. WELLBUTRIN XL [Suspect]
     Dosage: 450MG PER DAY
     Route: 048
     Dates: start: 20040602, end: 20040728

REACTIONS (1)
  - CONVULSION [None]
